FAERS Safety Report 8524107-2 (Version None)
Quarter: 2012Q3

REPORT INFORMATION
  Report Type: 
  Country: None (occurrence: None)
  Receive Date: 20120720
  Receipt Date: 20120712
  Transmission Date: 20120928
  Serious: Yes (Hospitalization)
  Sender: FDA-Public Use
  Company Number: US-BAYER-2012-071511

PATIENT
  Age: 23 Year
  Sex: Female
  Weight: 90.703 kg

DRUGS (8)
  1. VOLTAREN-XR [Concomitant]
     Dosage: 100 MG, UNK DAILY
  2. YASMIN [Suspect]
     Indication: MENSTRUAL DISORDER
  3. MULTI-VITAMIN [Concomitant]
  4. OSTEO BI-FLEX [Concomitant]
  5. DICLOFENAC SODIUM [Concomitant]
     Dosage: 100 MG, UNK
     Route: 048
     Dates: start: 20070115
  6. CALCIUM [Concomitant]
     Dosage: 500 MG, UNK DAILY
  7. SINGULAIR [Concomitant]
     Dosage: 10 MG, UNK
     Route: 048
     Dates: start: 20061206
  8. RHINOCORT [Concomitant]
     Dosage: UNK
     Route: 045
     Dates: start: 20061102

REACTIONS (2)
  - DEEP VEIN THROMBOSIS [None]
  - PULMONARY EMBOLISM [None]
